FAERS Safety Report 11930854 (Version 1)
Quarter: 2016Q1

REPORT INFORMATION
  Report Type: Spontaneous
  Country: US (occurrence: None)
  Receive Date: 20160120
  Receipt Date: 20160120
  Transmission Date: 20160526
  Serious: Yes (Life-Threatening, Hospitalization)
  Sender: FDA-Public Use
  Company Number: None

PATIENT
  Age: 47 Year
  Sex: Male
  Weight: 82 kg

DRUGS (1)
  1. OXYMETAZOLINE [Suspect]
     Active Substance: OXYMETAZOLINE
     Indication: SEASONAL ALLERGY
     Route: 045
     Dates: start: 20150611, end: 20150611

REACTIONS (6)
  - Dyspnoea [None]
  - Anaphylactic reaction [None]
  - Stridor [None]
  - Throat tightness [None]
  - Drooling [None]
  - Oropharyngeal pain [None]

NARRATIVE: CASE EVENT DATE: 20150611
